FAERS Safety Report 6904026-5 (Version None)
Quarter: 2010Q3

REPORT INFORMATION
  Report Type: 
  Country: None (occurrence: None)
  Receive Date: 20100804
  Receipt Date: 20090223
  Transmission Date: 20110219
  Serious: No
  Sender: FDA-Public Use
  Company Number: US-PFIZER INC-2009175125

PATIENT
  Sex: Female
  Weight: 81.6 kg

DRUGS (9)
  1. LYRICA [Suspect]
     Indication: SLEEP DISORDER
     Dosage: 50 MG, 1X/DAY
     Route: 048
     Dates: start: 20060101
  2. BUSPAR [Concomitant]
     Dosage: 15 MG, 3X/DAY
  3. CYMBALTA [Concomitant]
     Dosage: 60 MG, 2X/DAY
  4. EVOXAC [Concomitant]
     Dosage: 30 MG, 2X/DAY
  5. PREMARIN [Concomitant]
     Dosage: 0.625 MG, UNK
  6. PROVIGIL [Concomitant]
     Dosage: 200 MG, 2X/DAY
  7. SYNTHROID [Concomitant]
     Dosage: UNK
  8. FUROSEMIDE [Concomitant]
     Dosage: 20 MG, 1X/DAY
  9. DOXAZOSIN [Concomitant]
     Dosage: 1 MG, 1X/DAY

REACTIONS (2)
  - DRUG INEFFECTIVE [None]
  - SWELLING [None]
